FAERS Safety Report 10357432 (Version 1)
Quarter: 2014Q3

REPORT INFORMATION
  Report Type: Report from Study
  Country: IT (occurrence: IT)
  Receive Date: 20140801
  Receipt Date: 20140801
  Transmission Date: 20150326
  Serious: Yes (Other)
  Sender: FDA-Public Use
  Company Number: IT-ROXANE LABORATORIES, INC.-2014-BI-34858GD

PATIENT

DRUGS (2)
  1. PREDNISONE. [Suspect]
     Active Substance: PREDNISONE
     Indication: RETROPERITONEAL FIBROSIS
     Dosage: 0.5 1 MG/KG/DAY DEPENDING ON FLARE SEVERITY, TAPERED TO 12.5 10 MG/DAY BY MONTH 3, 7.5 5 MG/DAY BY M
     Route: 065
  2. METHOTREXATE [Suspect]
     Active Substance: METHOTREXATE
     Indication: RETROPERITONEAL FIBROSIS
     Dosage: 15 20 MG/WEEK UNTIL MONTH 12
     Route: 065

REACTIONS (1)
  - Enterocolitis [Unknown]
